FAERS Safety Report 25161474 (Version 1)
Quarter: 2025Q2

REPORT INFORMATION
  Report Type: Spontaneous
  Country: US (occurrence: None)
  Receive Date: 20250404
  Receipt Date: 20250404
  Transmission Date: 20250717
  Serious: Yes (Other)
  Sender: FDA-CTU
  Company Number: None

PATIENT
  Age: 15 Year
  Sex: Male

DRUGS (7)
  1. GIVINOSTAT [Suspect]
     Active Substance: GIVINOSTAT
     Indication: Duchenne muscular dystrophy
     Dates: start: 20241015, end: 20250301
  2. METFORMIN [Concomitant]
     Active Substance: METFORMIN HYDROCHLORIDE
  3. METOPROLOL [Concomitant]
     Active Substance: METOPROLOL
  4. VAMOROLONE [Concomitant]
     Active Substance: VAMOROLONE
  5. LISINOPRIL [Concomitant]
     Active Substance: LISINOPRIL
  6. TESTOSTERONE [Concomitant]
     Active Substance: TESTOSTERONE
  7. ZOMETA [Concomitant]
     Active Substance: ZOLEDRONIC ACID

REACTIONS (1)
  - Alopecia [None]

NARRATIVE: CASE EVENT DATE: 20250227
